FAERS Safety Report 6360740-4 (Version None)
Quarter: 2009Q3

REPORT INFORMATION
  Report Type: 
  Country: None (occurrence: None)
  Receive Date: 20090918
  Receipt Date: 20090904
  Transmission Date: 20100115
  Serious: Yes (Death, Other)
  Sender: FDA-Public Use
  Company Number: US-RANBAXY-2009RR-27974

PATIENT
  Age: 35 Year
  Sex: Male

DRUGS (5)
  1. SERTRALINE HCL [Suspect]
  2. METHADONE HCL [Suspect]
     Indication: SUICIDE ATTEMPT
     Dosage: 200 MG, UNK
     Route: 048
  3. VENLAFAXINE HCL [Suspect]
  4. TOPIRAMATE [Concomitant]
  5. METHADONE HCL [Concomitant]
     Dosage: 10 MG, BID
     Route: 048

REACTIONS (3)
  - DRUG INTERACTION [None]
  - SEROTONIN SYNDROME [None]
  - SUICIDAL IDEATION [None]
